FAERS Safety Report 6944067-5 (Version None)
Quarter: 2010Q3

REPORT INFORMATION
  Report Type: 
  Country: None (occurrence: None)
  Receive Date: 20100827
  Receipt Date: 20100817
  Transmission Date: 20110219
  Serious: No
  Sender: FDA-Public Use
  Company Number: US-BIOGENIDEC-2010BI011414

PATIENT
  Age: 38 Year
  Sex: Female

DRUGS (2)
  1. TYSABRI [Suspect]
     Indication: MULTIPLE SCLEROSIS
     Route: 042
     Dates: start: 20050216, end: 20050216
  2. TYSABRI [Suspect]
     Route: 042
     Dates: start: 20060804

REACTIONS (3)
  - APHONIA [None]
  - INFUSION SITE DISCOMFORT [None]
  - POOR VENOUS ACCESS [None]
